FAERS Safety Report 5759090-6 (Version None)
Quarter: 2008Q2

REPORT INFORMATION
  Report Type: 
  Country: None (occurrence: None)
  Receive Date: 20080604
  Receipt Date: 20080527
  Transmission Date: 20081010
  Serious: Yes (Life-Threatening, Hospitalization)
  Sender: FDA-Public Use
  Company Number: US-ELI_LILLY_AND_COMPANY-US200804002975

PATIENT
  Age: 41 Year
  Sex: Female

DRUGS (15)
  1. CYMBALTA [Suspect]
     Indication: DEPRESSION
     Dosage: 60 MG, 2/D
     Dates: start: 20080101, end: 20080101
  2. VITAMIN E [Concomitant]
  3. BIOTIN [Concomitant]
  4. FOLIC ACID [Concomitant]
  5. METOPROLOL TARTRATE [Concomitant]
     Indication: CARDIAC DISORDER
  6. XANAX [Concomitant]
     Dosage: UNK, AS NEEDED
  7. NEURONTIN [Concomitant]
  8. AMITRIPTYLINE HCL [Concomitant]
  9. TEMAZEPAM [Concomitant]
  10. MULTIVITAMINS AND IRON [Concomitant]
  11. LYRICA [Concomitant]
  12. DICLOFENAC SODIUM [Concomitant]
  13. METHOCARBAMOL [Concomitant]
  14. SOMA [Concomitant]
     Dosage: 1 D/F, UNK
  15. HYDROCODONE [Concomitant]
     Dosage: 1 D/F, UNK

REACTIONS (3)
  - HEPATIC FAILURE [None]
  - MEMORY IMPAIRMENT [None]
  - RENAL FAILURE [None]
